FAERS Safety Report 20913826 (Version 2)
Quarter: 2022Q3

REPORT INFORMATION
  Report Type: Spontaneous
  Country: CN (occurrence: CN)
  Receive Date: 20220604
  Receipt Date: 20220713
  Transmission Date: 20221027
  Serious: Yes (Hospitalization, Other)
  Sender: FDA-Public Use
  Company Number: CN-UCBSA-2022030376

PATIENT
  Age: 6 Year
  Sex: Male

DRUGS (7)
  1. KEPPRA [Suspect]
     Active Substance: LEVETIRACETAM
     Indication: Seizure
     Dosage: 66.7 MILLIGRAM/KILOGRAM PER DAY
  2. VALPROIC ACID [Concomitant]
     Active Substance: VALPROIC ACID
     Indication: Seizure
     Dosage: 28.6 MILLIGRAM/KILOGRAM PER DAY
  3. CLONAZEPAM [Concomitant]
     Active Substance: CLONAZEPAM
     Indication: Seizure
     Dosage: 0.67 MILLIGRAM/KILOGRAM PER DAY
  4. TOPIRAMATE [Concomitant]
     Active Substance: TOPIRAMATE
     Indication: Seizure
     Dosage: 1.7 MILLIGRAM/KILOGRAM PER DAY
  5. ZONISAMIDE [Concomitant]
     Active Substance: ZONISAMIDE
     Indication: Seizure
     Dosage: 12.9 MILLIGRAM/KILOGRAM PER DAY
  6. CLOBAZAM [Concomitant]
     Active Substance: CLOBAZAM
     Indication: Seizure
     Dosage: 0.94 MILLIGRAM/KILOGRAM PER DAY
  7. PERAMPANEL [Concomitant]
     Active Substance: PERAMPANEL
     Indication: Seizure
     Dosage: 0.12 MILLIGRAM/KILOGRAM PER DAY

REACTIONS (4)
  - Status epilepticus [Unknown]
  - Myoclonic epilepsy [Recovered/Resolved]
  - Dysphagia [Unknown]
  - Lethargy [Unknown]
